FAERS Safety Report 21696090 (Version 1)
Quarter: 2022Q4

REPORT INFORMATION
  Report Type: Spontaneous
  Country: IT (occurrence: IT)
  Receive Date: 20221207
  Receipt Date: 20221207
  Transmission Date: 20230113
  Serious: Yes (Other)
  Sender: FDA-Public Use
  Company Number: None

PATIENT
  Age: 28 Year
  Sex: Female
  Weight: 80 kg

DRUGS (4)
  1. TOPAMAX [Suspect]
     Active Substance: TOPIRAMATE
     Indication: Headache
     Dosage: 25 MG SPLIT TABLET
     Route: 048
     Dates: start: 202202, end: 202203
  2. LEVOTHYROXINE SODIUM [Concomitant]
     Active Substance: LEVOTHYROXINE SODIUM
     Indication: Hypothyroidism
     Dosage: 50 +75  MICROGRAMMI
     Route: 048
  3. NATALIZUMAB [Concomitant]
     Active Substance: NATALIZUMAB
     Indication: Relapsing-remitting multiple sclerosis
     Dosage: 300 MG EVERY 28-35 DAYS
     Route: 042
  4. DESOGESTREL [Concomitant]
     Active Substance: DESOGESTREL
     Indication: Dysmenorrhoea
     Route: 065

REACTIONS (3)
  - Hallucination, visual [Recovered/Resolved]
  - Glare [Recovered/Resolved]
  - Intentional product misuse [Recovered/Resolved]

NARRATIVE: CASE EVENT DATE: 20220201
